FAERS Safety Report 5115126-7 (Version None)
Quarter: 2006Q3

REPORT INFORMATION
  Report Type: 
  Country: None (occurrence: None)
  Receive Date: 20060922
  Receipt Date: 20060908
  Transmission Date: 20061208
  Serious: Yes (Disabling)
  Sender: FDA-Public Use
  Company Number: 163-21880-06081403

PATIENT
  Age: 77 Year
  Sex: Male
  Weight: 53.9 kg

DRUGS (13)
  1. CC-5103 (LENALIDOMIDE) (CAPSULES)   REVLIMID [Suspect]
     Indication: MULTIPLE MYELOMA
     Dosage: 25 MG, DAILY FOR 21 DAYS, ORAL
     Route: 048
     Dates: start: 20060516, end: 20060731
  2. CC-5103 (LENALIDOMIDE) (CAPSULES)   REVLIMID [Suspect]
     Dosage: 25 MG, DAILY; ORAL
     Route: 048
     Dates: start: 20060808, end: 20060821
  3. DECADRON [Suspect]
     Indication: MULTIPLE MYELOMA
     Dosage: SEE IMAGE
     Route: 048
     Dates: start: 20060516, end: 20060714
  4. DECADRON [Suspect]
     Indication: MULTIPLE MYELOMA
     Dosage: SEE IMAGE
     Route: 048
     Dates: start: 20060808
  5. ONE A DAY (MULTIPLE VITAMINS) (TABLETS) [Concomitant]
  6. DIFLUCAN [Concomitant]
  7. CARAFATE [Concomitant]
  8. LEVAQUIN [Concomitant]
  9. PERCOCET [Concomitant]
  10. HYTRIN [Concomitant]
  11. DIOVAN [Concomitant]
  12. ATIVAN [Concomitant]
  13. PRILOSEC [Concomitant]

REACTIONS (13)
  - ANAEMIA [None]
  - BACK PAIN [None]
  - BLINDNESS [None]
  - CAROTID ARTERY ATHEROMA [None]
  - CEREBRAL ATROPHY [None]
  - CEREBRAL INFARCTION [None]
  - CEREBRAL ISCHAEMIA [None]
  - CONSTIPATION [None]
  - EYE DISORDER [None]
  - ILL-DEFINED DISORDER [None]
  - THROMBOSIS [None]
  - VISION BLURRED [None]
  - VISUAL ACUITY REDUCED [None]
